FAERS Safety Report 8988708 (Version 3)
Quarter: 2017Q3

REPORT INFORMATION
  Report Type: Spontaneous
  Country: IT (occurrence: IT)
  Receive Date: 20121228
  Receipt Date: 20170814
  Transmission Date: 20171128
  Serious: Yes (Hospitalization)
  Sender: FDA-Public Use
  Company Number: IT-B.I. PHARMACEUTICALS,INC./RIDGEFIELD-2012-BI-04594GD

PATIENT
  Age: 78 Year
  Sex: Female

DRUGS (5)
  1. LEVODOPA-CARBIDOPA [Suspect]
     Active Substance: CARBIDOPA\LEVODOPA
     Indication: PARKINSON^S DISEASE
     Route: 048
  2. LEVODOPA-BENSERAZIDE [Suspect]
     Active Substance: BENSERAZIDE\LEVODOPA
     Route: 048
  3. LEVODOPA-BENSERAZIDE [Suspect]
     Active Substance: BENSERAZIDE\LEVODOPA
     Indication: PARKINSON^S DISEASE
     Route: 048
  4. SIFROL [Suspect]
     Active Substance: PRAMIPEXOLE
     Indication: PARKINSON^S DISEASE
     Route: 048
  5. BROMAZEPAM [Concomitant]
     Active Substance: BROMAZEPAM
     Indication: PERSISTENT DEPRESSIVE DISORDER
     Dosage: 10 PLUS 20 DROPS
     Route: 048

REACTIONS (13)
  - Tremor [Unknown]
  - Diarrhoea [Unknown]
  - Chorea [Unknown]
  - Anuria [Unknown]
  - Vomiting [Unknown]
  - Rhabdomyolysis [Unknown]
  - Oliguria [Unknown]
  - Dystonia [Unknown]
  - Leukocytosis [Recovered/Resolved]
  - Metabolic acidosis [Unknown]
  - Dyskinesia [Unknown]
  - Acute kidney injury [Unknown]
  - Hyperhidrosis [Unknown]
